FAERS Safety Report 20421783 (Version 1)
Quarter: 2022Q1

REPORT INFORMATION
  Report Type: Spontaneous
  Country: US (occurrence: US)
  Receive Date: 20220203
  Receipt Date: 20220203
  Transmission Date: 20220424
  Serious: No
  Sender: FDA-Public Use
  Company Number: US-FOUNDATIONCB-2021-US-023909

PATIENT
  Age: 81 Year
  Sex: Male
  Weight: 83.92 kg

DRUGS (1)
  1. ALAVERT ALLERGY [Suspect]
     Active Substance: LORATADINE
     Indication: Multiple allergies
     Dosage: 1 TAB DAILY
     Route: 048
     Dates: start: 20201101

REACTIONS (1)
  - Constipation [Recovered/Resolved]

NARRATIVE: CASE EVENT DATE: 20211027
